FAERS Safety Report 7362329-7 (Version None)
Quarter: 2011Q1

REPORT INFORMATION
  Report Type: 
  Country: None (occurrence: None)
  Receive Date: 20110318
  Receipt Date: 20110308
  Transmission Date: 20110831
  Serious: Yes (Hospitalization, Other)
  Sender: FDA-Public Use
  Company Number: US-BAYER-2011-021253

PATIENT
  Sex: Male

DRUGS (8)
  1. SOMA [Concomitant]
  2. METOPROLOL SUCCINATE [Concomitant]
  3. AMLODIPINE [Concomitant]
     Dosage: 10 MG, UNK
  4. BENICAR HCT [Concomitant]
     Dosage: 40/12.5, QD
  5. AVELOX [Suspect]
     Indication: SINUSITIS
     Dosage: 400 MG, QD
     Route: 048
     Dates: start: 20090330
  6. ASPIRIN [Concomitant]
  7. SIMVASTATIN [Concomitant]
     Dosage: 20 MG, HS
  8. AVELOX [Suspect]
     Indication: BRONCHITIS

REACTIONS (3)
  - LIMB DISCOMFORT [None]
  - TENDON RUPTURE [None]
  - MUSCULOSKELETAL DISCOMFORT [None]
